FAERS Safety Report 25146858 (Version 2)
Quarter: 2025Q2

REPORT INFORMATION
  Report Type: Spontaneous
  Country: NL (occurrence: NL)
  Receive Date: 20250401
  Receipt Date: 20250402
  Transmission Date: 20250717
  Serious: Yes (Life-Threatening)
  Sender: ABBVIE
  Company Number: None

PATIENT
  Age: 41 Year
  Sex: Female
  Weight: 91 kg

DRUGS (3)
  1. ATOGEPANT [Suspect]
     Active Substance: ATOGEPANT
     Indication: Migraine
     Route: 048
     Dates: start: 20250214, end: 20250228
  2. ATOGEPANT [Suspect]
     Active Substance: ATOGEPANT
     Indication: Migraine
     Route: 048
     Dates: start: 2025
  3. TOLPERISONE [Concomitant]
     Active Substance: TOLPERISONE
     Indication: Ehlers-Danlos syndrome
     Route: 048
     Dates: start: 2023

REACTIONS (4)
  - Depression [Recovered/Resolved]
  - Listless [Recovered/Resolved]
  - Suicidal ideation [Recovered/Resolved]
  - Unevaluable event [Recovered/Resolved]
